FAERS Safety Report 4768756-6 (Version None)
Quarter: 2005Q3

REPORT INFORMATION
  Report Type: 
  Country: None (occurrence: None)
  Receive Date: 20050914
  Receipt Date: 20050902
  Transmission Date: 20060218
  Serious: Yes (Hospitalization)
  Sender: FDA-Public Use
  Company Number: CN-JNJFOC-20050900651

PATIENT
  Age: 29 Year
  Sex: Female

DRUGS (1)
  1. SPORANOX [Suspect]
     Route: 065
     Dates: start: 20050712, end: 20050819

REACTIONS (2)
  - RESPIRATORY TRACT INFECTION [None]
  - WHITE BLOOD CELL COUNT DECREASED [None]
